FAERS Safety Report 11549429 (Version 1)
Quarter: 2015Q3

REPORT INFORMATION
  Report Type: Spontaneous
  Country: US (occurrence: US)
  Receive Date: 20150903
  Receipt Date: 20150903
  Transmission Date: 20151125
  Serious: No
  Sender: FDA-Public Use
  Company Number: US-ELI_LILLY_AND_COMPANY-US201303004268

PATIENT
  Age: 71 Year
  Sex: Female

DRUGS (1)
  1. HUMALOG MIX75/25 [Suspect]
     Active Substance: INSULIN LISPRO
     Indication: TYPE 2 DIABETES MELLITUS
     Dosage: UNK, PRN
     Dates: start: 201301

REACTIONS (7)
  - Abdominal distension [Unknown]
  - Blood glucose decreased [Unknown]
  - Blister [Not Recovered/Not Resolved]
  - Injection site mass [Unknown]
  - Hyperhidrosis [Unknown]
  - Sleep disorder due to general medical condition, insomnia type [Unknown]
  - Rash [Not Recovered/Not Resolved]

NARRATIVE: CASE EVENT DATE: 20130312
